FAERS Safety Report 9564132 (Version 1)
Quarter: 2013Q3

REPORT INFORMATION
  Report Type: Report from Study
  Country: RU (occurrence: RU)
  Receive Date: 20130930
  Receipt Date: 20130930
  Transmission Date: 20140515
  Serious: Yes (Other)
  Sender: FDA-Public Use
  Company Number: RU-ROCHE-1281073

PATIENT
  Age: 64 Year
  Sex: Male
  Weight: 78 kg

DRUGS (3)
  1. AVASTIN [Suspect]
     Indication: RECTAL CANCER METASTATIC
     Route: 065
     Dates: start: 20121219
  2. FLUOROURACIL [Concomitant]
     Indication: RECTAL CANCER METASTATIC
     Dosage: FROM 1 TILL 5 DAYS OF CYCLE
     Route: 065
     Dates: start: 20121219, end: 20130826
  3. LEUCOVORIN [Concomitant]
     Indication: RECTAL CANCER METASTATIC
     Dosage: FROM 1 TILL 5 DAYS OF CYCLE
     Route: 065
     Dates: start: 20121219, end: 20130826

REACTIONS (2)
  - Disease progression [Unknown]
  - Recurrent cancer [Unknown]
